FAERS Safety Report 6141931-4 (Version None)
Quarter: 2009Q1

REPORT INFORMATION
  Report Type: 
  Country: None (occurrence: None)
  Receive Date: 20090331
  Receipt Date: 20090324
  Transmission Date: 20090719
  Serious: Yes (Life-Threatening)
  Sender: FDA-Public Use
  Company Number: 2009EU001246

PATIENT
  Sex: Male

DRUGS (1)
  1. PROTOPIC [Suspect]
     Indication: ORAL LICHEN PLANUS
     Dosage: 0.1 %, PRN, TOPICAL
     Route: 061
     Dates: start: 20050101, end: 20060101

REACTIONS (1)
  - SQUAMOUS CELL CARCINOMA OF SKIN [None]
